FAERS Safety Report 5118522-7 (Version None)
Quarter: 2006Q3

REPORT INFORMATION
  Report Type: 
  Country: None (occurrence: None)
  Receive Date: 20060927
  Receipt Date: 20060913
  Transmission Date: 20061208
  Serious: Yes (Death)
  Sender: FDA-Public Use
  Company Number: 2006S1008724

PATIENT
  Age: 67 Year
  Sex: Female

DRUGS (5)
  1. NITROFURANTOIN [Suspect]
     Indication: URINARY TRACT INFECTION
     Dosage: PO
     Route: 048
  2. PHENAZOPYRIDINE [Concomitant]
  3. CILAZAPRIL [Concomitant]
  4. SIMVASTATIN [Concomitant]
  5. LEVOTHYROXINE SODIUM [Concomitant]

REACTIONS (12)
  - ANTINUCLEAR ANTIBODY INCREASED [None]
  - ARTERIOSCLEROSIS [None]
  - BLOOD ALBUMIN DECREASED [None]
  - BLOOD IMMUNOGLOBULIN A INCREASED [None]
  - BLOOD IMMUNOGLOBULIN G INCREASED [None]
  - BLOOD IMMUNOGLOBULIN M INCREASED [None]
  - BLOOD LACTIC ACID INCREASED [None]
  - HAEMOGLOBIN DECREASED [None]
  - HEPATIC FAILURE [None]
  - HEPATITIS FULMINANT [None]
  - LIVER TRANSPLANT [None]
  - PALLOR [None]
